FAERS Safety Report 6932406-0 (Version None)
Quarter: 2010Q3

REPORT INFORMATION
  Report Type: 
  Country: None (occurrence: None)
  Receive Date: 20100817
  Receipt Date: 20100809
  Transmission Date: 20110219
  Serious: No
  Sender: FDA-Public Use
  Company Number: 2010080012

PATIENT
  Age: 37 Year
  Sex: Female

DRUGS (2)
  1. ONSOLIS [Suspect]
     Indication: CANCER PAIN
     Dosage: TITRATE UP TO 4-200 MCG (200 MCG, 1 IN 6 HR),BU
     Route: 002
     Dates: start: 20100702, end: 20100809
  2. ACTIQ [Suspect]
     Indication: PAIN
     Dosage: (200 MCG,AS REQUIRED)

REACTIONS (3)
  - DRUG DISPENSING ERROR [None]
  - DRUG PRESCRIBING ERROR [None]
  - WRONG DRUG ADMINISTERED [None]
